FAERS Safety Report 4535817-6 (Version None)
Quarter: 2004Q4

REPORT INFORMATION
  Report Type: 
  Country: None (occurrence: None)
  Receive Date: 20041223
  Receipt Date: 20040401
  Transmission Date: 20050328
  Serious: No
  Sender: FDA-Public Use
  Company Number: US-GLAXOSMITHKLINE-A0505597A

PATIENT
  Age: 43 Year
  Sex: Female

DRUGS (6)
  1. FLONASE [Suspect]
     Indication: RHINITIS
     Dosage: 2SPR PER DAY
     Route: 045
     Dates: start: 20020101, end: 20030101
  2. LEVLEN 28 [Concomitant]
  3. TRAZODONE HCL [Concomitant]
  4. PREVACID [Concomitant]
  5. CELEXA [Concomitant]
  6. CLARITIN [Concomitant]

REACTIONS (1)
  - PHARYNGOLARYNGEAL PAIN [None]
